FAERS Safety Report 17347763 (Version 1)
Quarter: 2020Q1

REPORT INFORMATION
  Report Type: Report from Study
  Country: US (occurrence: US)
  Receive Date: 20200129
  Receipt Date: 20200129
  Transmission Date: 20200409
  Serious: No
  Sender: FDA-Public Use
  Company Number: US-EXELIXIS-CABO-19025243

PATIENT
  Age: 81 Year
  Sex: Female

DRUGS (1)
  1. CABOMETYX [Suspect]
     Active Substance: CABOZANTINIB S-MALATE
     Indication: RENAL CELL CARCINOMA
     Dosage: 20 MG, QD
     Route: 048
     Dates: start: 201909

REACTIONS (11)
  - Hypoacusis [Unknown]
  - Pain in extremity [Unknown]
  - Visual impairment [Unknown]
  - Balance disorder [Unknown]
  - Fatigue [Unknown]
  - Constipation [Unknown]
  - Musculoskeletal stiffness [Unknown]
  - Lip dry [Unknown]
  - Nausea [Unknown]
  - Weight decreased [Unknown]
  - Decreased appetite [Unknown]

NARRATIVE: CASE EVENT DATE: 20191106
